FAERS Safety Report 15756372 (Version 2)
Quarter: 2019Q1

REPORT INFORMATION
  Report Type: Spontaneous
  Country: FR (occurrence: FR)
  Receive Date: 20181224
  Receipt Date: 20190102
  Transmission Date: 20190417
  Serious: Yes (Hospitalization, Other)
  Sender: FDA-Public Use
  Company Number: FR-PFIZER INC-2018391620

PATIENT
  Age: 65 Year
  Sex: Female
  Weight: 94 kg

DRUGS (18)
  1. LOSARTAN AND HYDROCHLOROTHIAZIDE [Suspect]
     Active Substance: HYDROCHLOROTHIAZIDE\LOSARTAN POTASSIUM
     Dosage: UNK
     Route: 065
  2. SODIUM ALGINATE [Concomitant]
     Active Substance: SODIUM ALGINATE
     Dosage: UNK
     Route: 065
  3. HYDROCHLOROTHIAZIDE/IRBESARTAN [Suspect]
     Active Substance: HYDROCHLOROTHIAZIDE\IRBESARTAN
     Dosage: UNK
     Route: 065
  4. INSULIN DETEMIR [Suspect]
     Active Substance: INSULIN DETEMIR
     Indication: DIABETES MELLITUS
     Dosage: UNK
     Route: 065
  5. PERINDOPRIL [Suspect]
     Active Substance: PERINDOPRIL
     Dosage: UNK
     Route: 065
  6. REPAGLINIDE. [Suspect]
     Active Substance: REPAGLINIDE
     Indication: DIABETES MELLITUS
     Dosage: 2 MG, 1X/DAY
     Route: 065
  7. VILDAGLIPTIN [Suspect]
     Active Substance: VILDAGLIPTIN
     Dosage: 2 MG, 1X/DAY
     Route: 065
  8. FUROSEMIDE. [Suspect]
     Active Substance: FUROSEMIDE
     Dosage: UNK
     Route: 065
  9. PARACETAMOL/OPIUM [Suspect]
     Active Substance: ACETAMINOPHEN\OPIUM
  10. LANSOPRAZOLE. [Suspect]
     Active Substance: LANSOPRAZOLE
     Dosage: UNK
     Route: 065
  11. PARACETAMOL [Concomitant]
     Active Substance: ACETAMINOPHEN
     Dosage: UNK
  12. VILDAGLIPTIN [Suspect]
     Active Substance: VILDAGLIPTIN
     Indication: DIABETES MELLITUS
     Dosage: 50 MG, 1X/DAY
     Route: 065
  13. CELECOXIB. [Suspect]
     Active Substance: CELECOXIB
     Indication: ARTHRALGIA
     Dosage: 100 MG, QD
     Route: 065
  14. METFORMIN HYDROCHLORIDE. [Suspect]
     Active Substance: METFORMIN HYDROCHLORIDE
     Indication: DIABETES MELLITUS
     Dosage: 3 G, 1X/DAY
     Route: 065
  15. ACARBOSE. [Suspect]
     Active Substance: ACARBOSE
     Indication: DIABETES MELLITUS
     Dosage: 300 MG, 1X/DAY
     Route: 065
  16. PARACETAMOL CODEINE [Suspect]
     Active Substance: ACETAMINOPHEN\CODEINE PHOSPHATE
     Dosage: UNK
     Route: 065
  17. BILASTINE [Suspect]
     Active Substance: BILASTINE
     Dosage: UNK
     Route: 048
  18. METOCLOPRAMIDE. [Concomitant]
     Active Substance: METOCLOPRAMIDE
     Indication: DIABETES MELLITUS
     Dosage: UNK

REACTIONS (5)
  - Overdose [Unknown]
  - Renal failure [Unknown]
  - Lactic acidosis [Unknown]
  - Vomiting [Unknown]
  - Abdominal pain [Unknown]
